FAERS Safety Report 5789261-4 (Version None)
Quarter: 2008Q2

REPORT INFORMATION
  Report Type: 
  Country: None (occurrence: None)
  Receive Date: 20080625
  Receipt Date: 20080625
  Transmission Date: 20081010
  Serious: Yes (Hospitalization)
  Sender: FDA-Public Use
  Company Number: None

PATIENT
  Age: 70 Year
  Sex: Male
  Weight: 73.9363 kg

DRUGS (6)
  1. OXALIPLATIN [Suspect]
     Indication: OESOPHAGEAL ADENOCARCINOMA
     Dosage: 164MG  EVERY OTHER WEEK IV DRIP
     Route: 041
     Dates: start: 20080305, end: 20080528
  2. LEUCOVORIN IVP 400MG/M2 [Suspect]
     Dosage: 772MG EVERY OTHER WEEK IV DRIP
     Route: 041
     Dates: start: 20080305, end: 20080528
  3. FLUOROURACIL [Suspect]
     Dosage: 772MG EVERY OTHER WEEK IV
     Route: 042
  4. IVCI 2400MG/M2 [Suspect]
     Dosage: 4362MG, EVERY OTHER WEEK
  5. FOLFOX [Concomitant]
  6. 5-FU IVCI [Concomitant]

REACTIONS (3)
  - ABDOMINAL PAIN [None]
  - CONDITION AGGRAVATED [None]
  - DISEASE PROGRESSION [None]
